FAERS Safety Report 9437494 (Version 3)
Quarter: 2013Q3

REPORT INFORMATION
  Report Type: Spontaneous
  Country: US (occurrence: US)
  Receive Date: 20130802
  Receipt Date: 20130820
  Transmission Date: 20140515
  Serious: Yes (Other)
  Sender: FDA-Public Use
  Company Number: US-BAYER-2013-092321

PATIENT
  Age: 39 Year
  Sex: Female
  Weight: 92.97 kg

DRUGS (2)
  1. MIRENA [Suspect]
     Indication: CONTRACEPTION
     Dosage: 20 MCG/24HR, CONT
     Route: 015
     Dates: start: 200909, end: 20130726
  2. ULTRAM [Concomitant]
     Dosage: UNK

REACTIONS (6)
  - Device dislocation [None]
  - Uterine haemorrhage [None]
  - Pelvic pain [None]
  - Asthenia [None]
  - Dizziness [None]
  - Vaginal haemorrhage [None]
